FAERS Safety Report 7902729-7 (Version None)
Quarter: 2011Q4

REPORT INFORMATION
  Report Type: 
  Country: None (occurrence: None)
  Receive Date: 20111109
  Receipt Date: 20111028
  Transmission Date: 20120403
  Serious: Yes (Hospitalization, Disabling)
  Sender: FDA-Public Use
  Company Number: AR-BRISTOL-MYERS SQUIBB COMPANY-16204471

PATIENT
  Age: 55 Year

DRUGS (4)
  1. METHOTREXATE [Suspect]
     Route: 048
  2. NAPROXEN [Suspect]
  3. FOLIC ACID [Suspect]
  4. ORENCIA [Suspect]

REACTIONS (7)
  - BRONCHITIS [None]
  - DYSPHAGIA [None]
  - WEIGHT DECREASED [None]
  - RESPIRATORY FAILURE [None]
  - RHEUMATOID ARTHRITIS [None]
  - RESPIRATORY TRACT INFECTION [None]
  - PYREXIA [None]
